FAERS Safety Report 16743584 (Version 5)
Quarter: 2021Q1

REPORT INFORMATION
  Report Type: Report from Study
  Country: JP (occurrence: JP)
  Receive Date: 20190827
  Receipt Date: 20210223
  Transmission Date: 20210419
  Serious: Yes (Death, Other)
  Sender: FDA-Public Use
  Company Number: JP-ASTELLAS-2019JP018201

PATIENT
  Age: 61 Year
  Sex: Male

DRUGS (8)
  1. TETRAMIDE [Concomitant]
     Active Substance: MIANSERIN
     Indication: SCHIZOPHRENIA
     Dosage: 15 MG/DAY, UNKNOWN FREQ.
     Route: 048
     Dates: end: 20191219
  2. ASP2215 [Suspect]
     Active Substance: GILTERITINIB
     Indication: ACUTE MYELOID LEUKAEMIA RECURRENT
     Route: 048
     Dates: start: 20190723, end: 20201228
  3. FEBURIC [Concomitant]
     Active Substance: FEBUXOSTAT
     Indication: PROPHYLAXIS
     Dosage: 20 MG/DAY, UNKNOWN FREQ.
     Route: 048
     Dates: end: 20201228
  4. BIPERIDEN HYDROCHLORIDE [Concomitant]
     Active Substance: BIPERIDEN HYDROCHLORIDE
     Indication: SCHIZOPHRENIA
     Dosage: 1 MG/DAY, UNKNOWN FREQ.
     Route: 048
     Dates: end: 20191107
  5. MAGNESIUM OXIDE. [Concomitant]
     Active Substance: MAGNESIUM OXIDE
     Indication: PROPHYLAXIS
     Dosage: 1500 MG/DAY, UNKNOWN FREQ.
     Route: 048
     Dates: end: 20191107
  6. OLMESARTAN OD [Concomitant]
     Active Substance: OLMESARTAN MEDOXOMIL
     Indication: HYPERTENSION
     Dosage: 20 MG/DAY, UNKNOWN FREQ.
     Route: 048
     Dates: end: 20201228
  7. METFORMIN HYDROCHLORIDE. [Concomitant]
     Active Substance: METFORMIN HYDROCHLORIDE
     Indication: DIABETES MELLITUS
     Dosage: 1000 MG/DAY, UNKNOWN FREQ.
     Route: 048
     Dates: end: 20201228
  8. ABILIFY [Concomitant]
     Active Substance: ARIPIPRAZOLE
     Indication: SCHIZOPHRENIA
     Dosage: 3 MG/DAY, UNKNOWN FREQ.
     Route: 048
     Dates: end: 20201228

REACTIONS (1)
  - Neutrophil count decreased [Recovered/Resolved]

NARRATIVE: CASE EVENT DATE: 20190729
